FAERS Safety Report 7083548-3 (Version None)
Quarter: 2010Q4

REPORT INFORMATION
  Report Type: 
  Country: None (occurrence: None)
  Receive Date: 20101104
  Receipt Date: 20101025
  Transmission Date: 20110411
  Serious: Yes (Hospitalization, Other)
  Sender: FDA-Public Use
  Company Number: US-ROCHE-719230

PATIENT
  Sex: Female
  Weight: 70.3 kg

DRUGS (2)
  1. ACCUTANE [Suspect]
     Indication: ACNE
     Route: 065
     Dates: start: 20020220, end: 20020803
  2. CENESTIN [Concomitant]

REACTIONS (15)
  - BLOOD CHOLESTEROL INCREASED [None]
  - BLOOD TRIGLYCERIDES INCREASED [None]
  - COLITIS [None]
  - COLONIC POLYP [None]
  - DEPRESSION [None]
  - DRY MOUTH [None]
  - HEADACHE [None]
  - INFLAMMATORY BOWEL DISEASE [None]
  - LYMPHOCYTE COUNT INCREASED [None]
  - NASAL DRYNESS [None]
  - NEPHROLITHIASIS [None]
  - ORAL HERPES [None]
  - SUICIDAL IDEATION [None]
  - SUICIDE ATTEMPT [None]
  - WHITE BLOOD CELL COUNT DECREASED [None]
